FAERS Safety Report 10097324 (Version 2)
Quarter: 2014Q2

REPORT INFORMATION
  Report Type: Spontaneous
  Country: TR (occurrence: TR)
  Receive Date: 20140423
  Receipt Date: 20140508
  Transmission Date: 20141212
  Serious: Yes (Hospitalization)
  Sender: FDA-Public Use
  Company Number: PHHY2014TR048259

PATIENT
  Age: 20 Year
  Sex: Male

DRUGS (4)
  1. 5-FLUOROURACIL [Suspect]
     Indication: COLON CANCER METASTATIC
     Dosage: 4 G
  2. OXALIPLATIN [Suspect]
     Indication: COLON CANCER METASTATIC
     Dosage: 200 MG
  3. FOLINIC ACID [Suspect]
     Indication: COLON CANCER METASTATIC
     Dosage: 700 MG
  4. BEVACIZUMAB [Suspect]
     Indication: COLON CANCER METASTATIC
     Dosage: 300 MG

REACTIONS (8)
  - Loss of consciousness [Recovered/Resolved]
  - Coma scale abnormal [Recovered/Resolved]
  - Unresponsive to stimuli [Recovered/Resolved]
  - Hypopnoea [Recovered/Resolved]
  - Mydriasis [Recovered/Resolved]
  - Metabolic acidosis [Recovered/Resolved]
  - Convulsion [Recovered/Resolved]
  - Diarrhoea [Recovered/Resolved]
